FAERS Safety Report 21915799 (Version 3)
Quarter: 2024Q4

REPORT INFORMATION
  Report Type: Spontaneous
  Country: US (occurrence: US)
  Receive Date: 20230126
  Receipt Date: 20241206
  Transmission Date: 20250115
  Serious: No
  Sender: SANOFI AVENTIS
  Company Number: US-SA-SAC20230124001488

PATIENT
  Age: 24 Year
  Sex: Female

DRUGS (5)
  1. DUPIXENT [Suspect]
     Active Substance: DUPILUMAB
     Indication: Eczema
     Dosage: 300 MG, QOW
     Route: 058
  2. DUPIXENT [Suspect]
     Active Substance: DUPILUMAB
     Indication: Dermatitis allergic
  3. RINVOQ [Concomitant]
     Active Substance: UPADACITINIB
     Indication: Dermatitis atopic
  4. RINVOQ [Concomitant]
     Active Substance: UPADACITINIB
     Indication: Eczema
  5. RINVOQ [Concomitant]
     Active Substance: UPADACITINIB
     Indication: Arthritis

REACTIONS (7)
  - Eye disorder [Unknown]
  - Eye swelling [Not Recovered/Not Resolved]
  - Condition aggravated [Not Recovered/Not Resolved]
  - Dry eye [Not Recovered/Not Resolved]
  - Eye irritation [Not Recovered/Not Resolved]
  - Eye pruritus [Unknown]
  - Injection site reaction [Unknown]
